FAERS Safety Report 5153593-3 (Version None)
Quarter: 2006Q4

REPORT INFORMATION
  Report Type: 
  Country: None (occurrence: None)
  Receive Date: 20061113
  Receipt Date: 20061025
  Transmission Date: 20070319
  Serious: Yes (Life-Threatening, Hospitalization, Disabling)
  Sender: FDA-Public Use
  Company Number: 231951

PATIENT
  Age: 68 Year
  Sex: Female
  Weight: 67.8 kg

DRUGS (4)
  1. AVASTIN [Suspect]
     Indication: COLORECTAL CANCER METASTATIC
     Dosage: 372 MG, Q3W, INTRAVENOUS
     Route: 042
     Dates: start: 20060815
  2. OXALIPLATIN [Suspect]
     Indication: COLORECTAL CANCER METASTATIC
     Dates: start: 20060815
  3. FLUOROURACIL [Suspect]
     Indication: COLORECTAL CANCER METASTATIC
     Dates: start: 20060815
  4. LEUCOVORIN CALCIUM [Suspect]
     Indication: COLORECTAL CANCER METASTATIC
     Dates: start: 20060815

REACTIONS (4)
  - BONE MARROW FAILURE [None]
  - FACE OEDEMA [None]
  - FEBRILE NEUTROPENIA [None]
  - SEPSIS [None]
